FAERS Safety Report 8811464 (Version 1)
Quarter: 2012Q4

REPORT INFORMATION
  Report Type: Spontaneous
  Country: US (occurrence: None)
  Receive Date: 20120925
  Receipt Date: 20120925
  Transmission Date: 20130627
  Serious: Yes (Other)
  Sender: FDA-Public Use
  Company Number: None

PATIENT
  Age: 54 Year
  Sex: Female

DRUGS (1)
  1. ENBREL [Suspect]
     Indication: RHEUMATOID ARTHRITIS
     Dosage: 50mg qweek sq
     Route: 058
     Dates: start: 20091216, end: 20120919

REACTIONS (5)
  - Lip pain [None]
  - Oral disorder [None]
  - Rash macular [None]
  - Lip swelling [None]
  - Dry mouth [None]
